FAERS Safety Report 16383121 (Version 1)
Quarter: 2019Q2

REPORT INFORMATION
  Report Type: Spontaneous
  Country: US (occurrence: US)
  Receive Date: 20190502
  Receipt Date: 20190502
  Transmission Date: 20190711
  Serious: Yes (Other)
  Sender: FDA-Public Use
  Company Number: None

PATIENT
  Age: 49 Year
  Sex: Female
  Weight: 73.35 kg

DRUGS (6)
  1. WELLBUTRIN [Concomitant]
     Active Substance: BUPROPION HYDROCHLORIDE
  2. FLUVOXAMINE [Concomitant]
     Active Substance: FLUVOXAMINE
  3. LAMICTAL [Concomitant]
     Active Substance: LAMOTRIGINE
  4. XANEX [Concomitant]
  5. KRATOM TEA [Suspect]
     Active Substance: HERBALS\MITRAGYNINE
     Indication: SUBSTANCE USE
     Route: 048
     Dates: start: 20190429, end: 20190430
  6. LUNESTA [Concomitant]
     Active Substance: ESZOPICLONE

REACTIONS (3)
  - Loss of consciousness [None]
  - Respiratory arrest [None]
  - Skin discolouration [None]

NARRATIVE: CASE EVENT DATE: 20190429
